FAERS Safety Report 24062457 (Version 1)
Quarter: 2024Q3

REPORT INFORMATION
  Report Type: Spontaneous
  Country: US (occurrence: US)
  Receive Date: 20240708
  Receipt Date: 20240708
  Transmission Date: 20241017
  Serious: Yes (Hospitalization, Other)
  Sender: SANDOZ
  Company Number: US-SANDOZ-SDZ2024US019464

PATIENT
  Age: 66 Year
  Sex: Female

DRUGS (3)
  1. HALOPERIDOL DECANOATE [Suspect]
     Active Substance: HALOPERIDOL DECANOATE
     Indication: Psychotic disorder
     Dosage: 100 MG
     Route: 030
  2. HALOPERIDOL DECANOATE [Suspect]
     Active Substance: HALOPERIDOL DECANOATE
     Indication: Catatonia
  3. LORAZEPAM [Concomitant]
     Active Substance: LORAZEPAM
     Indication: Product used for unknown indication
     Dosage: 1 MG, TID
     Route: 048

REACTIONS (3)
  - Catatonia [Recovering/Resolving]
  - Delirium [Unknown]
  - Hyponatraemia [Recovered/Resolved]
